FAERS Safety Report 7100102-5 (Version None)
Quarter: 2010Q4

REPORT INFORMATION
  Report Type: 
  Country: None (occurrence: None)
  Receive Date: 20101112
  Receipt Date: 20091214
  Transmission Date: 20110411
  Serious: No
  Sender: FDA-Public Use
  Company Number: A0834994A

PATIENT
  Age: 60 Year
  Sex: Male

DRUGS (12)
  1. CARVEDILOL [Suspect]
     Indication: HYPERTENSION
     Dosage: 25MG TWICE PER DAY
     Route: 048
     Dates: start: 20030101
  2. CYMBALTA [Suspect]
     Indication: DEPRESSION
     Dosage: 30MG PER DAY
     Route: 048
     Dates: start: 20091212
  3. LISINOPRIL [Concomitant]
  4. NORVASC [Concomitant]
  5. FLOMAX [Concomitant]
  6. FLAXSEED [Concomitant]
  7. FISH OIL [Concomitant]
  8. VITAMIN D [Concomitant]
  9. CALCIUM [Concomitant]
  10. ACIDOPHILUS [Concomitant]
  11. ASA BABY [Concomitant]
  12. M.V.I. [Concomitant]

REACTIONS (1)
  - SOMNOLENCE [None]
